FAERS Safety Report 19060837 (Version 2)
Quarter: 2021Q2

REPORT INFORMATION
  Report Type: Report from Study
  Country: US (occurrence: US)
  Receive Date: 20210326
  Receipt Date: 20210611
  Transmission Date: 20210717
  Serious: No
  Sender: FDA-Public Use
  Company Number: US-ACADIA PHARMACEUTICALS INC.-ACA-2021-PIM-000885

PATIENT
  Sex: Male

DRUGS (13)
  1. JANTOVEN [Concomitant]
     Active Substance: WARFARIN SODIUM
  2. AMLODIPINE BESYLATE. [Concomitant]
     Active Substance: AMLODIPINE BESYLATE
     Dosage: 5 MILLIGRAM
  3. FUROSEMIDE. [Concomitant]
     Active Substance: FUROSEMIDE
  4. QUETIAPINE. [Concomitant]
     Active Substance: QUETIAPINE
  5. CALCIUM CARBONATE. [Concomitant]
     Active Substance: CALCIUM CARBONATE
  6. DONEPEZIL. [Concomitant]
     Active Substance: DONEPEZIL
  7. LISINOPRIL. [Concomitant]
     Active Substance: LISINOPRIL
  8. NUPLAZID [Suspect]
     Active Substance: PIMAVANSERIN TARTRATE
     Indication: PARKINSON^S DISEASE
     Dosage: 34 MILLIGRAM, QD
     Route: 048
     Dates: start: 202008
  9. RANEXA [Suspect]
     Active Substance: RANOLAZINE
     Dosage: 1000 MILLIGRAM, ER 12 H
  10. BUPROPION. [Concomitant]
     Active Substance: BUPROPION
  11. SINEMET [Concomitant]
     Active Substance: CARBIDOPA\LEVODOPA
  12. ATORVASTATIN [Concomitant]
     Active Substance: ATORVASTATIN
  13. TAMSULOSIN [Concomitant]
     Active Substance: TAMSULOSIN

REACTIONS (1)
  - Nightmare [Unknown]
